FAERS Safety Report 19804160 (Version 1)
Quarter: 2021Q3

REPORT INFORMATION
  Report Type: Spontaneous
  Country: US (occurrence: US)
  Receive Date: 20210908
  Receipt Date: 20210908
  Transmission Date: 20211014
  Serious: No
  Sender: FDA-Public Use
  Company Number: US-FARMAPROD-202106-0997

PATIENT
  Sex: Female
  Weight: 45.85 kg

DRUGS (6)
  1. KEPPRA [Concomitant]
     Active Substance: LEVETIRACETAM
     Dosage: 500 MG/5 ML VIAL
  2. MULTIVITAMIN [Concomitant]
     Active Substance: VITAMINS
  3. PYRIDOXINE HCL [Concomitant]
     Active Substance: PYRIDOXINE HYDROCHLORIDE
  4. CONTACT LENS [Concomitant]
     Active Substance: DEVICE
  5. OFLOXACIN. [Concomitant]
     Active Substance: OFLOXACIN
  6. OXERVATE [Suspect]
     Active Substance: CENEGERMIN-BKBJ
     Indication: NEUROTROPHIC KERATOPATHY
     Route: 047
     Dates: start: 20210609

REACTIONS (1)
  - Off label use [Unknown]
